FAERS Safety Report 10017534 (Version 1)
Quarter: 2014Q1

REPORT INFORMATION
  Report Type: Spontaneous
  Country: JP (occurrence: JP)
  Receive Date: 20140318
  Receipt Date: 20140318
  Transmission Date: 20141002
  Serious: Yes (Death)
  Sender: FDA-Public Use
  Company Number: JP-MALLINCKRODT-T201401570

PATIENT
  Age: 58 Year
  Sex: Male
  Weight: 71.6 kg

DRUGS (6)
  1. METHADONE [Suspect]
     Indication: CANCER PAIN
     Dosage: 5 MG, (15 MG DAILY DOSE)
     Route: 048
     Dates: start: 20140114, end: 20140117
  2. METHADONE [Suspect]
     Dosage: 10 MG, (30 MG DAILY DOSE)
     Route: 048
     Dates: start: 20140118, end: 20140118
  3. METHADONE [Suspect]
     Dosage: 5 MG, (15 MG DAILY DOSE)
     Route: 048
     Dates: start: 20140119, end: 20140119
  4. PARIET [Concomitant]
     Dosage: 10 MG, UNK
     Route: 048
     Dates: end: 20140119
  5. MAGMITT [Concomitant]
     Dosage: 250 MG, UNK
     Route: 048
     Dates: end: 20140119
  6. LOXONIN [Concomitant]
     Dosage: 60 MG, UNK
     Route: 048
     Dates: end: 20140119

REACTIONS (1)
  - Small cell lung cancer [Fatal]
